FAERS Safety Report 6826397-0 (Version None)
Quarter: 2010Q3

REPORT INFORMATION
  Report Type: 
  Country: None (occurrence: None)
  Receive Date: 20100709
  Receipt Date: 20100629
  Transmission Date: 20110219
  Serious: Yes (Hospitalization, Other)
  Sender: FDA-Public Use
  Company Number: GB-NAPPMUNDI-GBR-2010-0006737

PATIENT
  Sex: Female

DRUGS (1)
  1. THEOPHYLLINE CR TABLET [Suspect]
     Indication: ASTHMA
     Dosage: 200 MG, UNK
     Route: 048
     Dates: start: 20100623, end: 20100624

REACTIONS (20)
  - ABDOMINAL PAIN UPPER [None]
  - APHASIA [None]
  - BEDRIDDEN [None]
  - COORDINATION ABNORMAL [None]
  - DRY MOUTH [None]
  - EAR DISCOMFORT [None]
  - EYE PAIN [None]
  - HYPERSENSITIVITY [None]
  - JUDGEMENT IMPAIRED [None]
  - MIGRAINE [None]
  - MOVEMENT DISORDER [None]
  - MUSCULOSKELETAL STIFFNESS [None]
  - OBSTRUCTIVE AIRWAYS DISORDER [None]
  - PAIN [None]
  - PHOTOPHOBIA [None]
  - RESTLESSNESS [None]
  - SWELLING FACE [None]
  - TACHYCARDIA [None]
  - TRISMUS [None]
  - VIITH NERVE PARALYSIS [None]
